FAERS Safety Report 7295029-2 (Version None)
Quarter: 2011Q1

REPORT INFORMATION
  Report Type: 
  Country: None (occurrence: None)
  Receive Date: 20110203
  Receipt Date: 20110126
  Transmission Date: 20110831
  Serious: Yes (Other)
  Sender: FDA-Public Use
  Company Number: TRP_07008_2010

PATIENT
  Sex: Male
  Weight: 61.6892 kg

DRUGS (2)
  1. INFERGEN [Suspect]
     Indication: HEPATITIS C
     Dosage: (15 UG QD SUBCUTANEOUS)
     Route: 058
     Dates: start: 20100520, end: 20110125
  2. RIBAVIRIN [Suspect]
     Indication: HEPATITIS C
     Dosage: (400 MG BID ORAL)
     Route: 048
     Dates: start: 20100520, end: 20110125

REACTIONS (7)
  - VOMITING [None]
  - HEADACHE [None]
  - FATIGUE [None]
  - DECREASED APPETITE [None]
  - CHILLS [None]
  - EPISTAXIS [None]
  - RECTAL HAEMORRHAGE [None]
